FAERS Safety Report 5313383-5 (Version None)
Quarter: 2007Q2

REPORT INFORMATION
  Report Type: 
  Country: None (occurrence: None)
  Receive Date: 20070426
  Receipt Date: 20070426
  Transmission Date: 20071010
  Serious: No
  Sender: FDA-Public Use
  Company Number: None

PATIENT
  Age: 73 Year
  Sex: Female

DRUGS (1)
  1. DILANTIN [Suspect]
     Indication: CONVULSION
     Dosage: 1300MG ONCE
     Dates: start: 20061221, end: 20061221

REACTIONS (4)
  - BRADYCARDIA [None]
  - EXTRASYSTOLES [None]
  - HYPOTENSION [None]
  - VENTRICULAR ARRHYTHMIA [None]
